FAERS Safety Report 17672817 (Version 1)
Quarter: 2020Q2

REPORT INFORMATION
  Report Type: Spontaneous
  Country: CA (occurrence: CA)
  Receive Date: 20200416
  Receipt Date: 20200416
  Transmission Date: 20200713
  Serious: Yes (Life-Threatening)
  Sender: FDA-Public Use
  Company Number: CA-ELI_LILLY_AND_COMPANY-CA202004004839

PATIENT
  Age: 49 Year
  Sex: Male
  Weight: 111 kg

DRUGS (1)
  1. TALTZ [Suspect]
     Active Substance: IXEKIZUMAB
     Indication: PSORIASIS
     Dosage: 80 MG, 1 EVERY 2 WEEKS
     Route: 058

REACTIONS (26)
  - Melaena [Recovering/Resolving]
  - Pain in extremity [Recovering/Resolving]
  - Pelvic fluid collection [Recovering/Resolving]
  - Rectal haemorrhage [Recovering/Resolving]
  - Colitis ischaemic [Recovering/Resolving]
  - Haemoglobin decreased [Recovering/Resolving]
  - Ileal ulcer [Recovering/Resolving]
  - Sepsis [Recovering/Resolving]
  - Abdominal pain [Recovering/Resolving]
  - Intestinal haemorrhage [Recovering/Resolving]
  - Small intestinal perforation [Recovering/Resolving]
  - Abdominal lymphadenopathy [Recovering/Resolving]
  - Diarrhoea haemorrhagic [Recovering/Resolving]
  - Hepatic steatosis [Recovering/Resolving]
  - Pyrexia [Recovering/Resolving]
  - Inflammatory bowel disease [Recovering/Resolving]
  - Colitis [Recovering/Resolving]
  - Large intestinal ulcer [Recovering/Resolving]
  - Large intestine polyp [Recovering/Resolving]
  - Abdominal hernia [Recovering/Resolving]
  - Back pain [Recovering/Resolving]
  - Diverticulum intestinal [Recovering/Resolving]
  - Crohn^s disease [Recovering/Resolving]
  - Large intestine perforation [Recovering/Resolving]
  - Abdominal abscess [Recovering/Resolving]
  - Proctalgia [Recovering/Resolving]
